FAERS Safety Report 7606173-1 (Version None)
Quarter: 2011Q3

REPORT INFORMATION
  Report Type: 
  Country: None (occurrence: None)
  Receive Date: 20110712
  Receipt Date: 20110705
  Transmission Date: 20111222
  Serious: Yes (Hospitalization)
  Sender: FDA-Public Use
  Company Number: DL2011-0536

PATIENT
  Age: 18 Year
  Sex: Female

DRUGS (3)
  1. MIFEPRISTONE (MIFEPREX) [Suspect]
     Indication: ABORTION INDUCED
     Dosage: 200 MG, ORAL
     Route: 048
     Dates: start: 20110324
  2. MISOPROSTOL [Suspect]
     Dosage: 800 MCG, BUCCAL
     Route: 002
     Dates: start: 20110325
  3. DOXYCYCLINE [Concomitant]

REACTIONS (4)
  - ABDOMINAL PAIN [None]
  - DYSURIA [None]
  - BACK PAIN [None]
  - PYREXIA [None]
